FAERS Safety Report 6781523-7 (Version None)
Quarter: 2010Q2

REPORT INFORMATION
  Report Type: 
  Country: None (occurrence: None)
  Receive Date: 20100621
  Receipt Date: 20100614
  Transmission Date: 20101027
  Serious: Yes (Hospitalization)
  Sender: FDA-Public Use
  Company Number: FR-SANOFI-AVENTIS-2010SA033905

PATIENT
  Age: 90 Year
  Sex: Female

DRUGS (9)
  1. AMAREL [Suspect]
     Route: 048
  2. LASIX [Suspect]
     Route: 048
  3. PIOGLITAZONE [Suspect]
     Route: 048
  4. CARDENSIEL [Suspect]
     Route: 048
  5. LEVOTHYROXINE SODIUM [Suspect]
     Route: 048
  6. PERINDOPRIL [Suspect]
     Route: 048
  7. ALDACTONE [Suspect]
     Route: 048
  8. DIFFU K [Suspect]
     Route: 048
  9. PREVISCAN [Suspect]
     Route: 048

REACTIONS (5)
  - BRADYCARDIA [None]
  - CARDIAC FAILURE [None]
  - DYSPNOEA [None]
  - OEDEMA PERIPHERAL [None]
  - OLIGURIA [None]
